FAERS Safety Report 7706940-X (Version None)
Quarter: 2011Q3

REPORT INFORMATION
  Report Type: 
  Country: None (occurrence: None)
  Receive Date: 20110824
  Receipt Date: 20110815
  Transmission Date: 20111222
  Serious: Yes (Other)
  Sender: FDA-Public Use
  Company Number: CH-GLAXOSMITHKLINE-B0740729A

PATIENT
  Age: 38 Year
  Sex: Female

DRUGS (5)
  1. VITAMIN TAB [Concomitant]
  2. LAMICTAL [Suspect]
     Indication: BIPOLAR DISORDER
     Dosage: 200MG PER DAY
     Route: 048
     Dates: start: 20080101
  3. ZOLPIDEM [Concomitant]
     Indication: SLEEP DISORDER
  4. SERTRALINE HYDROCHLORIDE [Concomitant]
     Route: 048
     Dates: end: 20110501
  5. WELLBUTRIN SR [Concomitant]
     Indication: DEPRESSION
     Route: 048
     Dates: start: 20090101

REACTIONS (3)
  - HYPERHIDROSIS [None]
  - BURNING SENSATION [None]
  - EPIDERMOLYSIS BULLOSA [None]
